FAERS Safety Report 9227040 (Version 1)
Quarter: 2013Q2

REPORT INFORMATION
  Report Type: Spontaneous
  Country: JP (occurrence: None)
  Receive Date: 20130410
  Receipt Date: 20130410
  Transmission Date: 20140414
  Serious: Yes (Other)
  Sender: FDA-Public Use
  Company Number: SPI201300213

PATIENT
  Age: 88 Year
  Sex: Female

DRUGS (3)
  1. AMITIZA [Suspect]
     Indication: CONSTIPATION
     Route: 048
     Dates: start: 20130220, end: 20130303
  2. MAGMITT (MAGNESIUM OXIDE) [Concomitant]
  3. BIOFERMIN R (STREPTOCOCCUS FAECALIS) [Concomitant]

REACTIONS (2)
  - Renal impairment [None]
  - Oedema peripheral [None]
